FAERS Safety Report 11376209 (Version 1)
Quarter: 2015Q3

REPORT INFORMATION
  Report Type: Spontaneous
  Country: US (occurrence: US)
  Receive Date: 20150813
  Receipt Date: 20150813
  Transmission Date: 20151125
  Serious: No
  Sender: FDA-Public Use
  Company Number: US-MERZ NORTH AMERICA, INC.-15MRZ-00414

PATIENT
  Age: 37 Year
  Sex: Male
  Weight: 90.8 kg

DRUGS (1)
  1. XEOMIN [Suspect]
     Active Substance: INCOBOTULINUMTOXINA
     Indication: SKIN COSMETIC PROCEDURE
     Dosage: 50 UNITS TOTAL DOSE TO FOREHEAD AND BETWEEN BROWS
     Dates: start: 20150716

REACTIONS (1)
  - Drug ineffective [Unknown]
